FAERS Safety Report 23295280 (Version 1)
Quarter: 2023Q4

REPORT INFORMATION
  Report Type: Spontaneous
  Country: US (occurrence: US)
  Receive Date: 20231214
  Receipt Date: 20231214
  Transmission Date: 20240110
  Serious: No
  Sender: FDA-Public Use
  Company Number: US-ALVOGEN-2023091429

PATIENT
  Sex: Female

DRUGS (2)
  1. FENTANYL [Suspect]
     Active Substance: FENTANYL\FENTANYL CITRATE
     Indication: Pain
     Dosage: STARTED USING 5 YEARS AGO.
  2. FENTANYL [Suspect]
     Active Substance: FENTANYL\FENTANYL CITRATE
     Indication: Pain
     Dosage: STRENGTH: 100 MCG/HR?EXPIRATION DATE: UU-JUL-2025?MANUFACTURING DATE: 25-JUL-2022

REACTIONS (4)
  - Arthritis [Unknown]
  - Device malfunction [Unknown]
  - Device adhesion issue [Unknown]
  - Drug effect less than expected [Unknown]
